FAERS Safety Report 4482201-X (Version None)
Quarter: 2004Q4

REPORT INFORMATION
  Report Type: 
  Country: None (occurrence: None)
  Receive Date: 20041020
  Receipt Date: 20041004
  Transmission Date: 20050328
  Serious: Yes (Hospitalization)
  Sender: FDA-Public Use
  Company Number: 2004GB02367

PATIENT
  Age: 45 Year
  Sex: Female
  Weight: 73.3 kg

DRUGS (6)
  1. NOLVADEX [Suspect]
     Indication: BREAST CANCER
     Dosage: 20 MG DAILY PO
     Route: 048
     Dates: start: 20040615, end: 20040826
  2. DOXORUBICIN HCL [Concomitant]
  3. CYCLOPHOSPHAMIDE [Concomitant]
  4. AMOXICILLIN [Concomitant]
  5. ZOLEDRONIC ACID [Concomitant]
  6. RADIOTHERAPY [Concomitant]

REACTIONS (5)
  - BRONCHIOLITIS [None]
  - COUGH [None]
  - DYSPNOEA EXERTIONAL [None]
  - VIRAL INFECTION [None]
  - WHEEZING [None]
